FAERS Safety Report 11699137 (Version 1)
Quarter: 2015Q4

REPORT INFORMATION
  Report Type: Report from Study
  Country: FR (occurrence: FR)
  Receive Date: 20151104
  Receipt Date: 20151104
  Transmission Date: 20160304
  Serious: Yes (Hospitalization)
  Sender: FDA-Public Use
  Company Number: FR-ASTRAZENECA-2015SF04770

PATIENT
  Age: 33329 Day
  Sex: Female

DRUGS (2)
  1. IRESSA [Suspect]
     Active Substance: GEFITINIB
     Indication: LUNG CANCER METASTATIC
     Route: 048
  2. FASLODEX [Suspect]
     Active Substance: FULVESTRANT
     Indication: LUNG CANCER METASTATIC
     Dosage: 500 MG (2X250 MG) EVERY MONTH WITH AN ADDITIONAL 500 MG DOSE TWO WEEKS AFTER THE INITIAL DOSE
     Route: 030

REACTIONS (2)
  - Pleural fistula [Recovered/Resolved]
  - Pleural effusion [Recovered/Resolved]

NARRATIVE: CASE EVENT DATE: 20151008
